FAERS Safety Report 19083626 (Version 3)
Quarter: 2022Q1

REPORT INFORMATION
  Report Type: Spontaneous
  Country: JP (occurrence: JP)
  Receive Date: 20210401
  Receipt Date: 20220124
  Transmission Date: 20220423
  Serious: Yes (Other)
  Sender: FDA-Public Use
  Company Number: JP-OTSUKA-2021_009400

PATIENT
  Sex: Female

DRUGS (3)
  1. ABILIFY [Suspect]
     Active Substance: ARIPIPRAZOLE
     Indication: Product used for unknown indication
     Dosage: UNK
     Route: 048
     Dates: start: 200707
  2. ABILIFY [Suspect]
     Active Substance: ARIPIPRAZOLE
     Dosage: UNK
     Route: 048
  3. ABILIFY [Suspect]
     Active Substance: ARIPIPRAZOLE
     Dosage: 0.5 MG/DAY
     Route: 048

REACTIONS (13)
  - Cerebral ischaemia [Unknown]
  - Visual impairment [Unknown]
  - Loss of consciousness [Unknown]
  - Angina pectoris [Unknown]
  - Skin fissures [Unknown]
  - Sensation of blood flow [Unknown]
  - Mucosal haemorrhage [Unknown]
  - Swelling [Unknown]
  - Feeling abnormal [Unknown]
  - Pain in extremity [Unknown]
  - Fall [Unknown]
  - Treatment noncompliance [Unknown]
  - Incorrect dose administered [Unknown]

NARRATIVE: CASE EVENT DATE: 20211219
